FAERS Safety Report 7325103-3 (Version None)
Quarter: 2011Q1

REPORT INFORMATION
  Report Type: 
  Country: None (occurrence: None)
  Receive Date: 20110302
  Receipt Date: 20110217
  Transmission Date: 20110831
  Serious: No
  Sender: FDA-Public Use
  Company Number: US-BIOGENIDEC-2010BI032933

PATIENT
  Sex: Male

DRUGS (3)
  1. CELEXA [Concomitant]
  2. WELLBUTRIN [Concomitant]
  3. TYSABRI [Suspect]
     Indication: MULTIPLE SCLEROSIS
     Route: 042
     Dates: start: 20091015

REACTIONS (5)
  - FATIGUE [None]
  - MULTIPLE SCLEROSIS [None]
  - SEXUAL DYSFUNCTION [None]
  - ANORGASMIA [None]
  - DRUG INEFFECTIVE [None]
